FAERS Safety Report 17499371 (Version 2)
Quarter: 2020Q2

REPORT INFORMATION
  Report Type: Report from Study
  Country: US (occurrence: US)
  Receive Date: 20200304
  Receipt Date: 20200407
  Transmission Date: 20200713
  Serious: Yes (Hospitalization)
  Sender: FDA-Public Use
  Company Number: US-ACTELION-A-NJ2020-202485

PATIENT
  Age: 57 Year
  Sex: Female

DRUGS (14)
  1. SPIRONOLACTONE. [Concomitant]
     Active Substance: SPIRONOLACTONE
  2. LISINOPRIL. [Concomitant]
     Active Substance: LISINOPRIL
  3. PANTOPRAZOLE [Concomitant]
     Active Substance: PANTOPRAZOLE
  4. TYLENOL [Concomitant]
     Active Substance: ACETAMINOPHEN
  5. ACYCLOVIR. [Concomitant]
     Active Substance: ACYCLOVIR
  6. ALBUTEROL HFA [Concomitant]
     Active Substance: ALBUTEROL SULFATE
  7. GABAPENTIN. [Concomitant]
     Active Substance: GABAPENTIN
  8. LEXAPRO [Concomitant]
     Active Substance: ESCITALOPRAM OXALATE
  9. ESCITALOPRAM [Concomitant]
     Active Substance: ESCITALOPRAM OXALATE
  10. OPSUMIT [Suspect]
     Active Substance: MACITENTAN
     Indication: PULMONARY ARTERIAL HYPERTENSION
     Dosage: 10 MG, QD
     Route: 048
     Dates: start: 201909
  11. TADALAFIL. [Concomitant]
     Active Substance: TADALAFIL
  12. LASIX [Concomitant]
     Active Substance: FUROSEMIDE
  13. ESTRING [Concomitant]
     Active Substance: ESTRADIOL
  14. MELATONIN [Concomitant]
     Active Substance: MELATONIN

REACTIONS (11)
  - Myalgia [Unknown]
  - Pyrexia [Recovering/Resolving]
  - Influenza like illness [Unknown]
  - Bronchitis [Unknown]
  - Fatigue [Recovering/Resolving]
  - Arthralgia [Recovering/Resolving]
  - Bacterial infection [Recovering/Resolving]
  - Asthenia [Unknown]
  - Nasal congestion [Unknown]
  - Cough [Unknown]
  - Influenza A virus test positive [Recovering/Resolving]

NARRATIVE: CASE EVENT DATE: 20200127
